FAERS Safety Report 25358276 (Version 1)
Quarter: 2025Q2

REPORT INFORMATION
  Report Type: Spontaneous
  Country: TW (occurrence: TW)
  Receive Date: 20250526
  Receipt Date: 20250526
  Transmission Date: 20250717
  Serious: Yes (Hospitalization)
  Sender: Steriscience PTE
  Company Number: None

PATIENT
  Age: 18 Year
  Sex: Female

DRUGS (11)
  1. VANCOMYCIN [Suspect]
     Active Substance: VANCOMYCIN
     Indication: Febrile neutropenia
     Route: 065
     Dates: start: 2009
  2. FLUCONAZOLE [Suspect]
     Active Substance: FLUCONAZOLE
     Indication: Febrile neutropenia
     Route: 065
     Dates: start: 2009
  3. VORICONAZOLE [Suspect]
     Active Substance: VORICONAZOLE
     Indication: Febrile neutropenia
     Route: 065
     Dates: start: 2009
  4. CILASTATIN SODIUM\IMIPENEM [Suspect]
     Active Substance: CILASTATIN SODIUM\IMIPENEM
     Indication: Febrile neutropenia
     Route: 065
     Dates: start: 2009
  5. VINCRISTINE [Concomitant]
     Active Substance: VINCRISTINE
     Indication: Precursor T-lymphoblastic lymphoma/leukaemia
     Route: 065
     Dates: start: 200908
  6. PREDNISOLONE [Concomitant]
     Active Substance: PREDNISOLONE
     Indication: Precursor T-lymphoblastic lymphoma/leukaemia
     Route: 065
     Dates: start: 200908
  7. DOXORUBICIN [Concomitant]
     Active Substance: DOXORUBICIN
     Indication: Precursor T-lymphoblastic lymphoma/leukaemia
     Route: 065
     Dates: start: 200908
  8. CYCLOPHOSPHAMIDE [Concomitant]
     Active Substance: CYCLOPHOSPHAMIDE
     Indication: Precursor T-lymphoblastic lymphoma/leukaemia
     Route: 065
     Dates: start: 2009
  9. MERCAPTOPURINE [Concomitant]
     Active Substance: MERCAPTOPURINE
     Indication: Precursor T-lymphoblastic lymphoma/leukaemia
     Route: 065
     Dates: start: 2009
  10. CYTARABINE [Concomitant]
     Active Substance: CYTARABINE
     Indication: Precursor T-lymphoblastic lymphoma/leukaemia
     Route: 065
  11. FILGRASTIM [Concomitant]
     Active Substance: FILGRASTIM
     Indication: Febrile neutropenia
     Route: 065

REACTIONS (2)
  - Hepatic enzyme abnormal [Unknown]
  - Off label use [Unknown]

NARRATIVE: CASE EVENT DATE: 20090101
